FAERS Safety Report 8477423-7 (Version None)
Quarter: 2012Q2

REPORT INFORMATION
  Report Type: 
  Country: None (occurrence: None)
  Receive Date: 20120629
  Receipt Date: 20120620
  Transmission Date: 20120825
  Serious: Yes (Other)
  Sender: FDA-Public Use
  Company Number: US-SANOFI-AVENTIS-2012SA044442

PATIENT
  Sex: Female

DRUGS (1)
  1. LOVENOX [Suspect]
     Dates: start: 20120201

REACTIONS (5)
  - INJECTION SITE NODULE [None]
  - MATERNAL EXPOSURE DURING PREGNANCY [None]
  - DRUG ADMINISTERED AT INAPPROPRIATE SITE [None]
  - HAEMATOMA [None]
  - CELLULITIS [None]
